FAERS Safety Report 15617443 (Version 1)
Quarter: 2018Q4

REPORT INFORMATION
  Report Type: Spontaneous
  Country: US (occurrence: US)
  Receive Date: 20181114
  Receipt Date: 20181114
  Transmission Date: 20190205
  Serious: Yes (Hospitalization)
  Sender: FDA-Public Use
  Company Number: None

PATIENT
  Age: 82 Year
  Sex: Female
  Weight: 78.3 kg

DRUGS (8)
  1. BRAFTOVI [Suspect]
     Active Substance: ENCORAFENIB
     Route: 048
  2. SYNTHROID [Concomitant]
     Active Substance: LEVOTHYROXINE SODIUM
  3. COLCRYS [Concomitant]
     Active Substance: COLCHICINE
  4. GABAPENTIN. [Concomitant]
     Active Substance: GABAPENTIN
  5. COUMADIN [Concomitant]
     Active Substance: WARFARIN SODIUM
  6. MEKTOVI [Suspect]
     Active Substance: BINIMETINIB
     Route: 048
  7. LIPITOR [Concomitant]
     Active Substance: ATORVASTATIN CALCIUM
  8. METFORMIN [Concomitant]
     Active Substance: METFORMIN HYDROCHLORIDE

REACTIONS (2)
  - Pain [None]
  - Blood test abnormal [None]
